FAERS Safety Report 14001659 (Version 3)
Quarter: 2017Q4

REPORT INFORMATION
  Report Type: Report from Study
  Country: JP (occurrence: JP)
  Receive Date: 20170922
  Receipt Date: 20171208
  Transmission Date: 20180321
  Serious: Yes (Hospitalization)
  Sender: FDA-Public Use
  Company Number: JP-SUNOVION-2017DSP002590

PATIENT
  Age: 29 Year
  Sex: Female
  Weight: 60 kg

DRUGS (4)
  1. BROTIZOLAM [Concomitant]
     Active Substance: BROTIZOLAM
     Indication: INSOMNIA
     Dosage: 0.25 MG, QD, PRN
     Route: 048
     Dates: start: 20170714
  2. LURASIDONE HYDROCHLORIDE [Suspect]
     Active Substance: LURASIDONE HYDROCHLORIDE
     Indication: SCHIZOPHRENIA
     Dosage: 40 MG, OR PLACEBO
     Route: 048
     Dates: start: 20170728, end: 20170906
  3. LURASIDONE HYDROCHLORIDE [Suspect]
     Active Substance: LURASIDONE HYDROCHLORIDE
     Dosage: 40 MG, UNK
     Route: 048
     Dates: start: 20170907
  4. LORAZEPAM. [Concomitant]
     Active Substance: LORAZEPAM
     Indication: ANXIETY
     Dosage: 1 MG, PRN
     Route: 048
     Dates: start: 20170713

REACTIONS (1)
  - Schizophrenia [Recovered/Resolved]

NARRATIVE: CASE EVENT DATE: 20170907
